FAERS Safety Report 4727187-5 (Version None)
Quarter: 2005Q3

REPORT INFORMATION
  Report Type: 
  Country: None (occurrence: None)
  Receive Date: 20050726
  Receipt Date: 20050726
  Transmission Date: 20060218
  Serious: Yes (Other)
  Sender: FDA-Public Use
  Company Number: None

PATIENT
  Age: 72 Year
  Sex: Male
  Weight: 151 kg

DRUGS (7)
  1. FELODIPINE [Suspect]
  2. POTASSIUM CHLORIDE [Concomitant]
  3. FELODIPINE [Concomitant]
  4. MULTIVITAMIN [Concomitant]
  5. ALBUTEROL [Concomitant]
  6. IRBESARTAN [Concomitant]
  7. FUROSEMIDE [Concomitant]

REACTIONS (1)
  - ASTHENIA [None]
